FAERS Safety Report 14915848 (Version 1)
Quarter: 2018Q2

REPORT INFORMATION
  Report Type: Spontaneous
  Country: CA (occurrence: CA)
  Receive Date: 20180518
  Receipt Date: 20180518
  Transmission Date: 20180711
  Serious: Yes (Other)
  Sender: FDA-Public Use
  Company Number: CA-PFIZER INC-2018196477

PATIENT
  Age: 61 Year
  Sex: Female

DRUGS (2)
  1. LETROZOLE. [Suspect]
     Active Substance: LETROZOLE
     Dosage: UNK
  2. IBRANCE [Suspect]
     Active Substance: PALBOCICLIB
     Dosage: 125 MG, DAILY/AND THEN STOPPING FROM 7 DAYS
     Dates: start: 201705

REACTIONS (6)
  - Cough [Unknown]
  - Cyanosis [Unknown]
  - Oedema [Unknown]
  - Interstitial lung disease [Unknown]
  - Scleroderma [Unknown]
  - Dyspnoea [Unknown]
